FAERS Safety Report 6768668-2 (Version None)
Quarter: 2010Q2

REPORT INFORMATION
  Report Type: 
  Country: None (occurrence: None)
  Receive Date: 20100614
  Receipt Date: 20100603
  Transmission Date: 20101027
  Serious: Yes (Death)
  Sender: FDA-Public Use
  Company Number: CN-PFIZER INC-2010067141

PATIENT
  Age: 62 Year
  Sex: Female

DRUGS (3)
  1. VFEND [Suspect]
     Indication: LUNG INFECTION
     Dosage: 300 MG, SINGLE
     Route: 042
     Dates: start: 20100524, end: 20100524
  2. AVELOX [Concomitant]
     Dosage: UNK
     Route: 042
     Dates: start: 20100501
  3. DIFLUCAN [Concomitant]
     Dosage: UNK
     Route: 042
     Dates: start: 20100501, end: 20100524

REACTIONS (2)
  - CARDIAC FAILURE ACUTE [None]
  - LUNG INFECTION [None]
